FAERS Safety Report 8590502-9 (Version None)
Quarter: 2012Q3

REPORT INFORMATION
  Report Type: 
  Country: None (occurrence: None)
  Receive Date: 20120813
  Receipt Date: 20120807
  Transmission Date: 20120928
  Serious: Yes (Other)
  Sender: FDA-Public Use
  Company Number: PHHY2012NL068025

PATIENT
  Sex: Female

DRUGS (2)
  1. TOBI [Suspect]
     Indication: BRONCHIECTASIS
     Dosage: 1 DF, BID
     Dates: start: 20120803
  2. TOBI [Suspect]
     Dosage: 4 DF, ONCE DAILY

REACTIONS (3)
  - DEAFNESS [None]
  - DIZZINESS [None]
  - NAUSEA [None]
